FAERS Safety Report 6023074-3 (Version None)
Quarter: 2008Q4

REPORT INFORMATION
  Report Type: 
  Country: None (occurrence: None)
  Receive Date: 20081230
  Receipt Date: 20050401
  Transmission Date: 20090506
  Serious: No
  Sender: FDA-Public Use
  Company Number: US-ABBOTT-08P-163-0467766-00

PATIENT

DRUGS (1)
  1. OMNICEF [Suspect]
     Indication: DRUG USE FOR UNKNOWN INDICATION

REACTIONS (4)
  - DIARRHOEA [None]
  - FAECES DISCOLOURED [None]
  - URINE COLOUR ABNORMAL [None]
  - WEIGHT DECREASED [None]
